FAERS Safety Report 5697252-7 (Version None)
Quarter: 2008Q2

REPORT INFORMATION
  Report Type: 
  Country: None (occurrence: None)
  Receive Date: 20080408
  Receipt Date: 20070518
  Transmission Date: 20081010
  Serious: No
  Sender: FDA-Public Use
  Company Number: US-BAYER-US-2007-027020

PATIENT
  Age: 37 Year
  Sex: Female

DRUGS (1)
  1. YASMIN [Suspect]
     Indication: ORAL CONTRACEPTION
     Route: 048
     Dates: start: 20060101, end: 20060801

REACTIONS (5)
  - ANGER [None]
  - DEPRESSION [None]
  - HEADACHE [None]
  - LOSS OF LIBIDO [None]
  - MOOD ALTERED [None]
